FAERS Safety Report 19810765 (Version 1)
Quarter: 2021Q3

REPORT INFORMATION
  Report Type: Spontaneous
  Country: CA (occurrence: CA)
  Receive Date: 20210909
  Receipt Date: 20210909
  Transmission Date: 20211014
  Serious: Yes (Death, Hospitalization)
  Sender: FDA-Public Use
  Company Number: CA-TEVA-2021-CA-1949017

PATIENT
  Age: 57 Year
  Sex: Female
  Weight: 56 kg

DRUGS (9)
  1. ASAPHEN [Concomitant]
     Active Substance: ASPIRIN
  2. FUROSEMIDE. [Concomitant]
     Active Substance: FUROSEMIDE
  3. INDACATEROL MALEATE [Concomitant]
     Active Substance: INDACATEROL MALEATE
  4. RAMIPRIL. [Concomitant]
     Active Substance: RAMIPRIL
  5. SEEBRI BREEZHALER [Concomitant]
     Active Substance: GLYCOPYRROLATE
  6. SALBUTAMOL [Concomitant]
     Active Substance: ALBUTEROL
  7. SILDENAFIL CITRATE. [Suspect]
     Active Substance: SILDENAFIL CITRATE
     Indication: PULMONARY ARTERIAL HYPERTENSION
     Dosage: 60 MILLIGRAM DAILY;
     Route: 048
  8. LIPITOR [Concomitant]
     Active Substance: ATORVASTATIN CALCIUM
  9. DIPHENHYDRAMINE HYDROCHLORIDE. [Concomitant]
     Active Substance: DIPHENHYDRAMINE HYDROCHLORIDE

REACTIONS (9)
  - Impaired healing [Fatal]
  - Angiopathy [Fatal]
  - Dyspepsia [Fatal]
  - Vomiting [Fatal]
  - Nausea [Fatal]
  - Sudden death [Fatal]
  - Asymptomatic COVID-19 [Fatal]
  - Constipation [Fatal]
  - Oropharyngeal pain [Fatal]
